FAERS Safety Report 14109348 (Version 5)
Quarter: 2018Q1

REPORT INFORMATION
  Report Type: Report from Study
  Country: BE (occurrence: BE)
  Receive Date: 20171019
  Receipt Date: 20180219
  Transmission Date: 20180508
  Serious: Yes (Other)
  Sender: FDA-Public Use
  Company Number: BE-B.I. PHARMACEUTICALS,INC./RIDGEFIELD-2017-BI-042029

PATIENT
  Age: 69 Year
  Sex: Male
  Weight: 91.9 kg

DRUGS (8)
  1. PLATINOL [Suspect]
     Active Substance: CISPLATIN
     Indication: PLEURAL MESOTHELIOMA MALIGNANT
     Route: 042
     Dates: start: 20170508, end: 20170724
  2. VITAMIN B12 [Concomitant]
     Active Substance: CYANOCOBALAMIN
     Indication: PROPHYLAXIS
     Route: 030
     Dates: start: 20170405
  3. PANTOPRAZOLE [Concomitant]
     Active Substance: PANTOPRAZOLE
     Indication: HYPERCHLORHYDRIA
     Route: 048
     Dates: start: 20170508
  4. FOLAVIT [Concomitant]
     Active Substance: FOLIC ACID
     Indication: ROUTINE HEALTH MAINTENANCE
  5. BLINDED BIBF 1120 [Suspect]
     Active Substance: NINTEDANIB
     Indication: PLEURAL MESOTHELIOMA MALIGNANT
     Route: 048
     Dates: start: 20170508, end: 20170724
  6. FOLAVIT [Concomitant]
     Active Substance: FOLIC ACID
     Indication: PROPHYLAXIS
     Route: 048
     Dates: start: 20170405
  7. PEMETREXED. [Suspect]
     Active Substance: PEMETREXED
     Indication: PLEURAL MESOTHELIOMA MALIGNANT
     Route: 042
     Dates: start: 20170508, end: 20170724
  8. VITAMIN B12 [Concomitant]
     Active Substance: CYANOCOBALAMIN
     Indication: ROUTINE HEALTH MAINTENANCE

REACTIONS (1)
  - Pulmonary embolism [Recovered/Resolved]

NARRATIVE: CASE EVENT DATE: 20170724
